FAERS Safety Report 8547913-7 (Version None)
Quarter: 2012Q3

REPORT INFORMATION
  Report Type: 
  Country: None (occurrence: None)
  Receive Date: 20120728
  Receipt Date: 20110107
  Transmission Date: 20120928
  Serious: Yes (Other)
  Sender: FDA-Public Use
  Company Number: GB-009507513-2011SP001131

PATIENT

DRUGS (2)
  1. MIRTAZAPINE [Suspect]
  2. ESCITALOPRAM [Suspect]

REACTIONS (1)
  - VIITH NERVE PARALYSIS [None]
